FAERS Safety Report 19146145 (Version 1)
Quarter: 2021Q2

REPORT INFORMATION
  Report Type: Spontaneous
  Country: US (occurrence: US)
  Receive Date: 20210416
  Receipt Date: 20210416
  Transmission Date: 20210717
  Serious: No
  Sender: FDA-Public Use
  Company Number: US-GALDERMA-US2021004498

PATIENT

DRUGS (1)
  1. DIFFERIN GEL [Suspect]
     Active Substance: ADAPALENE
     Indication: PRODUCT USED FOR UNKNOWN INDICATION
     Dosage: 0.1%
     Route: 061

REACTIONS (7)
  - Rash macular [Unknown]
  - Skin swelling [Unknown]
  - Pain of skin [Unknown]
  - Erythema [Unknown]
  - Swelling of eyelid [Unknown]
  - Skin tightness [Unknown]
  - Skin burning sensation [Unknown]
